FAERS Safety Report 5079599-0 (Version None)
Quarter: 2006Q3

REPORT INFORMATION
  Report Type: 
  Country: None (occurrence: None)
  Receive Date: 20060808
  Receipt Date: 20060719
  Transmission Date: 20061208
  Serious: Yes (Hospitalization, Other)
  Sender: FDA-Public Use
  Company Number: US200607003304

PATIENT
  Age: 65 Year
  Sex: Female

DRUGS (3)
  1. HUMALOG [Suspect]
     Indication: DIABETES MELLITUS
     Dates: start: 19960101
  2. HUMALOG PEN [Suspect]
     Indication: DIABETES MELLITUS
     Dates: start: 20050101
  3. HUAMLOG PEN (HUMALOG PEN) PEN, DISPOSABLE [Concomitant]

REACTIONS (3)
  - HAEMORRHAGE [None]
  - HEPATIC CIRRHOSIS [None]
  - OESOPHAGEAL VARICES HAEMORRHAGE [None]
